FAERS Safety Report 8832422 (Version 1)
Quarter: 2012Q4

REPORT INFORMATION
  Report Type: Spontaneous
  Country: US (occurrence: None)
  Receive Date: 20121005
  Receipt Date: 20121005
  Transmission Date: 20130627
  Serious: Yes (Death)
  Sender: FDA-Public Use
  Company Number: TPA2012A06881

PATIENT
  Age: 50 Year
  Sex: Male

DRUGS (1)
  1. DEXILANT [Suspect]
     Route: 048

REACTIONS (1)
  - Oesophageal carcinoma [None]
